FAERS Safety Report 5027639-7 (Version None)
Quarter: 2006Q2

REPORT INFORMATION
  Report Type: 
  Country: None (occurrence: None)
  Receive Date: 20060616
  Receipt Date: 20060606
  Transmission Date: 20061013
  Serious: Yes (Other)
  Sender: FDA-Public Use
  Company Number: CH-ABBOTT-06P-151-0335155-00

PATIENT

DRUGS (1)
  1. VALPROIC ACID [Suspect]
     Indication: CONVULSION PROPHYLAXIS
     Dosage: NOT REPORTED

REACTIONS (3)
  - EPISTAXIS [None]
  - SUBDURAL HAEMATOMA [None]
  - VON WILLEBRAND'S FACTOR MULTIMERS ABNORMAL [None]
